FAERS Safety Report 7288723-0 (Version None)
Quarter: 2011Q1

REPORT INFORMATION
  Report Type: 
  Country: None (occurrence: None)
  Receive Date: 20110211
  Receipt Date: 20110207
  Transmission Date: 20110831
  Serious: Yes (Death, Hospitalization, Other)
  Sender: FDA-Public Use
  Company Number: PHHY2011BR09807

PATIENT
  Sex: Male

DRUGS (6)
  1. CALTREN [Concomitant]
     Indication: CARDIOVASCULAR DISORDER
     Dosage: 10 MG, QD
     Route: 048
     Dates: start: 20110119
  2. SIMVASTATIN [Concomitant]
     Indication: BLOOD CHOLESTEROL INCREASED
     Dosage: 1 TABLET A DAY
     Route: 048
     Dates: start: 20060101
  3. COMBIRON [Concomitant]
     Indication: ANAEMIA
     Dosage: 1 TABLET A DAY
     Route: 048
     Dates: start: 20060101
  4. DIOVAN [Suspect]
     Indication: HYPERTENSION
     Dosage: 160 MG, QD
     Route: 048
     Dates: start: 20080101
  5. MONOCORDIL [Concomitant]
     Indication: CARDIAC DISORDER
     Dosage: 5 MG, QD
     Route: 048
     Dates: start: 20060101
  6. NEUTROFER [Concomitant]
     Indication: ANAEMIA
     Dosage: 500 MG, 1 TABLET A DAY
     Route: 048
     Dates: start: 20060101

REACTIONS (11)
  - DIZZINESS [None]
  - RENAL DISORDER [None]
  - ABDOMINAL PAIN [None]
  - RENAL FAILURE [None]
  - ANEURYSM RUPTURED [None]
  - DYSPNOEA [None]
  - COLD SWEAT [None]
  - FEELING ABNORMAL [None]
  - PAIN [None]
  - URINARY INCONTINENCE [None]
  - HYPOVOLAEMIC SHOCK [None]
